FAERS Safety Report 25058851 (Version 9)
Quarter: 2025Q2

REPORT INFORMATION
  Report Type: Spontaneous
  Country: IL (occurrence: IL)
  Receive Date: 20250310
  Receipt Date: 20250516
  Transmission Date: 20250716
  Serious: Yes (Life-Threatening, Hospitalization)
  Sender: SANDOZ
  Company Number: IL-002147023-NVSC2025IL026698

PATIENT
  Age: 50 Year
  Sex: Female
  Weight: 59 kg

DRUGS (27)
  1. CYCLOPHOSPHAMIDE [Suspect]
     Active Substance: CYCLOPHOSPHAMIDE
     Indication: Systemic scleroderma
     Dosage: UNK, QD
     Route: 042
     Dates: start: 20250122
  2. CYCLOPHOSPHAMIDE [Suspect]
     Active Substance: CYCLOPHOSPHAMIDE
     Dosage: UNK, QD
     Route: 042
     Dates: start: 20250123
  3. CYCLOPHOSPHAMIDE [Suspect]
     Active Substance: CYCLOPHOSPHAMIDE
     Dosage: UNK, QD
     Route: 042
     Dates: start: 20250124
  4. FLUDARABINE [Suspect]
     Active Substance: FLUDARABINE PHOSPHATE
     Indication: Systemic scleroderma
     Dosage: UNK, QD
     Route: 042
     Dates: start: 20250122
  5. FLUDARABINE [Suspect]
     Active Substance: FLUDARABINE PHOSPHATE
     Dosage: UNK, QD
     Route: 042
     Dates: start: 20250123
  6. FLUDARABINE [Suspect]
     Active Substance: FLUDARABINE PHOSPHATE
     Dosage: UNK, QD
     Route: 042
     Dates: start: 20250124
  7. ELIQUIS [Concomitant]
     Active Substance: APIXABAN
     Indication: Deep vein thrombosis
     Route: 065
     Dates: start: 20250126, end: 20250127
  8. ELIQUIS [Concomitant]
     Active Substance: APIXABAN
     Route: 065
     Dates: start: 20250128, end: 20250215
  9. FUROSEMIDE [Concomitant]
     Active Substance: FUROSEMIDE
     Indication: Hypervolaemia
     Route: 065
     Dates: start: 20250123, end: 20250123
  10. FUROSEMIDE [Concomitant]
     Active Substance: FUROSEMIDE
     Route: 065
     Dates: start: 20250126, end: 20250126
  11. FUROSEMIDE [Concomitant]
     Active Substance: FUROSEMIDE
     Route: 065
     Dates: start: 20250204, end: 20250204
  12. FUROSEMIDE [Concomitant]
     Active Substance: FUROSEMIDE
     Route: 065
     Dates: start: 20250214, end: 20250214
  13. LACTULOSE [Concomitant]
     Active Substance: LACTULOSE
     Dosage: UNK, QD
     Route: 042
     Dates: start: 20250123
  14. LACTULOSE [Concomitant]
     Active Substance: LACTULOSE
     Indication: Constipation
     Route: 042
     Dates: start: 20250124, end: 20250124
  15. LACTULOSE [Concomitant]
     Active Substance: LACTULOSE
     Route: 065
     Dates: start: 20250126, end: 20250126
  16. MAGNESIUM SULFATE [Concomitant]
     Active Substance: MAGNESIUM SULFATE
     Indication: Prophylaxis
     Route: 065
     Dates: start: 20250123, end: 20250123
  17. MAGNESIUM SULFATE [Concomitant]
     Active Substance: MAGNESIUM SULFATE
     Route: 065
     Dates: start: 20250126, end: 20250126
  18. MAGNESIUM SULFATE [Concomitant]
     Active Substance: MAGNESIUM SULFATE
     Route: 065
     Dates: start: 20250128, end: 20250128
  19. MAGNESIUM SULFATE [Concomitant]
     Active Substance: MAGNESIUM SULFATE
     Route: 065
     Dates: start: 20250202, end: 20250202
  20. MAGNESIUM SULFATE [Concomitant]
     Active Substance: MAGNESIUM SULFATE
     Route: 065
     Dates: start: 20250204, end: 20250204
  21. OMEPRAZOLE [Concomitant]
     Active Substance: OMEPRAZOLE
     Indication: Prophylaxis
     Route: 065
     Dates: start: 20250203, end: 20250309
  22. ACETAMINOPHEN [Concomitant]
     Active Substance: ACETAMINOPHEN
     Indication: Prophylaxis
     Route: 065
     Dates: start: 20250127, end: 20250127
  23. ACETAMINOPHEN [Concomitant]
     Active Substance: ACETAMINOPHEN
     Route: 065
     Dates: start: 20250210, end: 20250210
  24. ACETAMINOPHEN [Concomitant]
     Active Substance: ACETAMINOPHEN
     Route: 065
     Dates: start: 20250212, end: 20250213
  25. PROMETHAZINE [Concomitant]
     Active Substance: PROMETHAZINE HYDROCHLORIDE
     Indication: Prophylaxis
     Route: 065
     Dates: start: 20250127, end: 20250127
  26. TRIMETHOPRIM [Concomitant]
     Active Substance: TRIMETHOPRIM
     Indication: Prophylaxis
     Route: 065
     Dates: start: 20250123, end: 20250129
  27. VALACYCLOVIR [Concomitant]
     Active Substance: VALACYCLOVIR HYDROCHLORIDE
     Indication: Antiviral prophylaxis
     Route: 065
     Dates: start: 20250204, end: 20250309

REACTIONS (2)
  - Neutropenia [Recovered/Resolved]
  - Cytokine release syndrome [Recovered/Resolved]

NARRATIVE: CASE EVENT DATE: 20250210
